FAERS Safety Report 15268260 (Version 1)
Quarter: 2018Q3

REPORT INFORMATION
  Report Type: Spontaneous
  Country: US (occurrence: US)
  Receive Date: 20180725
  Receipt Date: 20180725
  Transmission Date: 20181010
  Serious: Yes (Life-Threatening, Hospitalization, Other)
  Sender: FDA-Public Use
  Company Number: None

PATIENT
  Age: 55 Year
  Sex: Female
  Weight: 103.5 kg

DRUGS (8)
  1. CENTRUM SILVER FOR WOMEN 50?PLUS [Concomitant]
  2. ASPIRIN. [Concomitant]
     Active Substance: ASPIRIN
  3. CEPHALEXIN. [Suspect]
     Active Substance: CEPHALEXIN
     Indication: INFECTION
     Dosage: ?          QUANTITY:20 TABLET(S);?
     Route: 048
     Dates: start: 20180713, end: 20180716
  4. ACCUPRIL (GENERIC) [Concomitant]
  5. CIPROFLOXACIN HCL [Suspect]
     Active Substance: CIPROFLOXACIN HYDROCHLORIDE
     Indication: INFECTION
     Dosage: ?          QUANTITY:20 TABLET(S);?
     Route: 048
     Dates: start: 20180716, end: 20180719
  6. TYLENOL [Concomitant]
     Active Substance: ACETAMINOPHEN
  7. NORVASC (GENERIC) [Concomitant]
  8. OSTEOBIFLEX [Concomitant]

REACTIONS (13)
  - Condition aggravated [None]
  - Headache [None]
  - Malaise [None]
  - Heart rate increased [None]
  - Lethargy [None]
  - Pyrexia [None]
  - Night sweats [None]
  - Red blood cell sedimentation rate increased [None]
  - Rheumatoid factor increased [None]
  - C-reactive protein increased [None]
  - Delirium [None]
  - Back pain [None]
  - Tremor [None]

NARRATIVE: CASE EVENT DATE: 20180716
